FAERS Safety Report 15650967 (Version 1)
Quarter: 2018Q4

REPORT INFORMATION
  Report Type: Spontaneous
  Country: US (occurrence: US)
  Receive Date: 20181123
  Receipt Date: 20181123
  Transmission Date: 20190205
  Serious: Yes (Hospitalization, Other)
  Sender: FDA-Public Use
  Company Number: US-AUROBINDO-AUR-APL-2018-055656

PATIENT
  Age: 27 Year
  Sex: Male

DRUGS (3)
  1. METHAMPHETAMINE                    /00069101/ [Concomitant]
     Active Substance: METHAMPHETAMINE
     Indication: BACK PAIN
     Dosage: UNK
     Route: 065
  2. ACETAMINOPHEN. [Suspect]
     Active Substance: ACETAMINOPHEN
     Indication: BACK PAIN
     Dosage: UNK
     Route: 065
  3. GUAIFENESIN AND DEXTROMETHORPHAN HYDROBROMIDE [Suspect]
     Active Substance: DEXTROMETHORPHAN HYDROBROMIDE\GUAIFENESIN
     Indication: PRODUCT USED FOR UNKNOWN INDICATION
     Dosage: LARGE INGESTION OF  CO-FORMULATED PRODUCT CO-FORMULATED PRODUCT ()
     Route: 048

REACTIONS (7)
  - Serotonin syndrome [Unknown]
  - Neuropsychiatric symptoms [Recovered/Resolved]
  - Drug abuse [Unknown]
  - Tachycardia [Recovered/Resolved]
  - Metabolic acidosis [Recovered/Resolved]
  - Toxicity to various agents [Unknown]
  - Hyperchloraemia [Recovered/Resolved]
